FAERS Safety Report 10194792 (Version 1)
Quarter: 2014Q2

REPORT INFORMATION
  Report Type: Spontaneous
  Country: US (occurrence: US)
  Receive Date: 20140526
  Receipt Date: 20140526
  Transmission Date: 20141212
  Serious: No
  Sender: FDA-Public Use
  Company Number: US-009507513-1405USA006123

PATIENT
  Sex: Male
  Weight: 68.48 kg

DRUGS (5)
  1. PEGINTRON [Suspect]
     Indication: HEPATITIS C
     Dosage: 0.5 ML (120 MCG/0.5 ML), QW
     Route: 058
  2. REBETOL [Suspect]
     Indication: HEPATITIS C
     Dosage: 200 MG, UNK
     Route: 048
  3. LEVOTHYROXINE SODIUM [Concomitant]
     Dosage: 100 MICROGRAM, UNK
     Route: 048
  4. TYLENOL [Concomitant]
     Dosage: 650 MG (8 HR TABLET), UNK
     Route: 048
  5. SOVALDI [Concomitant]
     Dosage: 400 MG, UNK
     Route: 048

REACTIONS (8)
  - Rib fracture [Unknown]
  - Nausea [Unknown]
  - Weight decreased [Unknown]
  - Dizziness [Unknown]
  - Hyperhidrosis [Unknown]
  - Influenza like illness [Unknown]
  - Dizziness [Unknown]
  - Physical assault [Unknown]
